FAERS Safety Report 4305971-X (Version None)
Quarter: 2004Q1

REPORT INFORMATION
  Report Type: 
  Country: None (occurrence: None)
  Receive Date: 20040224
  Receipt Date: 20040212
  Transmission Date: 20041129
  Serious: Yes (Other)
  Sender: FDA-Public Use
  Company Number: HQWYE986213FEB04

PATIENT
  Age: 60 Year
  Sex: Male
  Weight: 113.5 kg

DRUGS (3)
  1. EFFEXOR XR [Suspect]
     Indication: DEPRESSION
     Dosage: 37.5 MG 1X PER 1 DAY, ORAL
     Route: 048
     Dates: start: 20040209, end: 20040210
  2. TRAMADOL HCL [Suspect]
     Indication: FIBROMYALGIA
     Dosage: 50 MG, 2-3 TIMES A DAY
     Dates: start: 20030501
  3. TYLENOL PM (DIPHENHYDRAMINE / PARACETAMOL) [Concomitant]

REACTIONS (7)
  - BLOOD PRESSURE INCREASED [None]
  - CHEST PAIN [None]
  - DRUG INTERACTION [None]
  - GASTRIC DISORDER [None]
  - HEADACHE [None]
  - HEART RATE IRREGULAR [None]
  - OESOPHAGITIS [None]
